FAERS Safety Report 19330109 (Version 2)
Quarter: 2021Q2

REPORT INFORMATION
  Report Type: Spontaneous
  Country: CN (occurrence: CN)
  Receive Date: 20210528
  Receipt Date: 20210602
  Transmission Date: 20210717
  Serious: Yes (Other)
  Sender: FDA-Public Use
  Company Number: CN-PFIZER INC-2021550138

PATIENT
  Age: 82 Year
  Sex: Female

DRUGS (2)
  1. VANCOMYCIN HYDROCHLORIDE. [Suspect]
     Active Substance: VANCOMYCIN HYDROCHLORIDE
     Indication: PNEUMONIA
     Dosage: 1 MIU, 2X/DAY (Q12H)
     Route: 041
     Dates: start: 20210503, end: 20210506
  2. TAZOCIN [Suspect]
     Active Substance: PIPERACILLIN SODIUM\TAZOBACTAM SODIUM
     Indication: PNEUMONIA
     Dosage: 4.5 G, 3X/DAY (Q8H)
     Route: 041
     Dates: start: 20210503, end: 20210503

REACTIONS (4)
  - Rash [Recovering/Resolving]
  - Dyspnoea [Recovered/Resolved]
  - Body temperature increased [Unknown]
  - Erythema [Unknown]

NARRATIVE: CASE EVENT DATE: 20210503
